FAERS Safety Report 25214797 (Version 3)
Quarter: 2025Q3

REPORT INFORMATION
  Report Type: Report from Study
  Country: US (occurrence: US)
  Receive Date: 20250418
  Receipt Date: 20250715
  Transmission Date: 20251020
  Serious: No
  Sender: SANDOZ
  Company Number: US-SANDOZ-SDZ2025US023389

PATIENT
  Sex: Male

DRUGS (2)
  1. OMNITROPE [Suspect]
     Active Substance: SOMATROPIN
     Indication: Short stature
     Dosage: 1.6 MG, QD (STRENGTH: 10 MG /1.5 ML)
     Route: 058
  2. OMNITROPE [Suspect]
     Active Substance: SOMATROPIN
     Indication: Short stature
     Dosage: 1.6 MG, QD (STRENGTH: 10 MG /1.5 ML)
     Route: 058

REACTIONS (6)
  - Injection site discharge [Not Recovered/Not Resolved]
  - Inadvertent injection air bubble [Unknown]
  - Incorrect dose administered by device [Unknown]
  - Wrong technique in device usage process [Unknown]
  - Product temperature excursion issue [Unknown]
  - Device leakage [Unknown]
